FAERS Safety Report 6604396-1 (Version None)
Quarter: 2010Q1

REPORT INFORMATION
  Report Type: 
  Country: None (occurrence: None)
  Receive Date: 20100226
  Receipt Date: 20091002
  Transmission Date: 20100710
  Serious: No
  Sender: FDA-Public Use
  Company Number: A0808303A

PATIENT
  Age: 45 Year
  Sex: Male
  Weight: 77.3 kg

DRUGS (3)
  1. LAMICTAL CD [Suspect]
     Indication: MAJOR DEPRESSION
     Dosage: 100MG UNKNOWN
     Route: 048
  2. PROZAC [Concomitant]
  3. CYTOMEL [Concomitant]
     Dates: start: 20090101

REACTIONS (3)
  - ERECTILE DYSFUNCTION [None]
  - LIBIDO DECREASED [None]
  - SENSORY DISTURBANCE [None]
